FAERS Safety Report 9044737 (Version 1)
Quarter: 2013Q1

REPORT INFORMATION
  Report Type: Report from Study
  Country: US (occurrence: US)
  Receive Date: 20130130
  Receipt Date: 20130130
  Transmission Date: 20140127
  Serious: No
  Sender: FDA-Public Use
  Company Number: US-ABBOTT-12P-163-0967206-00

PATIENT
  Age: 52 Year
  Sex: Female

DRUGS (13)
  1. HUMIRA 40 MG/0.8 ML PEN [Suspect]
     Indication: RHEUMATOID ARTHRITIS
     Dosage: INITIAL DOSE
     Dates: start: 20120807
  2. FOLIC ACID [Concomitant]
     Indication: PROPHYLAXIS
  3. NEXIUM [Concomitant]
     Indication: GASTROOESOPHAGEAL REFLUX DISEASE
     Dosage: 40 MG X 1-2 TABLETS DAILY
  4. METHOTREXATE [Concomitant]
     Indication: ARTHRITIS
     Dosage: 2.5MG X 8 TABLETS 1 TIME A WEEK
  5. SUCRALFATE [Concomitant]
     Indication: GASTROOESOPHAGEAL REFLUX DISEASE
     Dosage: 1 GM 1-2 TIMES DAILY
  6. AMITIZA [Concomitant]
     Indication: IRRITABLE BOWEL SYNDROME
  7. AMITIZA [Concomitant]
     Indication: CONSTIPATION
  8. TOPIRAMATE [Concomitant]
     Indication: MIGRAINE
  9. AXERT [Concomitant]
     Indication: MIGRAINE
  10. CALTRATE [Concomitant]
     Indication: PRODUCT USED FOR UNKNOWN INDICATION
     Dosage: 2 TABLETS DAILY
  11. MULTIPLE VITAMINS [Concomitant]
     Indication: PRODUCT USED FOR UNKNOWN INDICATION
     Dosage: 1 DAILY
  12. MELATONIN [Concomitant]
     Indication: INSOMNIA
  13. TYLENOL PM [Concomitant]
     Indication: INSOMNIA

REACTIONS (1)
  - Injection site pain [Recovered/Resolved]
